FAERS Safety Report 23429690 (Version 1)
Quarter: 2024Q1

REPORT INFORMATION
  Report Type: Spontaneous
  Country: ZA (occurrence: ZA)
  Receive Date: 20240122
  Receipt Date: 20240122
  Transmission Date: 20240410
  Serious: Yes (Other)
  Sender: FDA-Public Use
  Company Number: ZA-PFIZER INC-202400016644

PATIENT
  Age: 50 Year
  Sex: Female
  Weight: 96 kg

DRUGS (1)
  1. SULFASALAZINE [Suspect]
     Active Substance: SULFASALAZINE
     Dosage: 1 G, 2X/DAY
     Dates: start: 20221014

REACTIONS (5)
  - Pulmonary embolism [Unknown]
  - Uveitis [Unknown]
  - Arthralgia [Unknown]
  - Mouth ulceration [Unknown]
  - Treatment failure [Unknown]

NARRATIVE: CASE EVENT DATE: 20231016
